FAERS Safety Report 7937770-1 (Version None)
Quarter: 2011Q4

REPORT INFORMATION
  Report Type: 
  Country: None (occurrence: None)
  Receive Date: 20111123
  Receipt Date: 20111118
  Transmission Date: 20120403
  Serious: Yes (Other)
  Sender: FDA-Public Use
  Company Number: PHHY2011FR101914

PATIENT
  Age: 67 Year
  Sex: Male
  Weight: 140 kg

DRUGS (12)
  1. VALSARTAN  AND HYDROCHLOROTHIAZIDE [Concomitant]
  2. ISOPTIN [Concomitant]
  3. ONBREZ [Suspect]
     Indication: CHRONIC OBSTRUCTIVE PULMONARY DISEASE
     Dosage: 150 UG, QD
     Dates: start: 20111109, end: 20111112
  4. MEBEVERINE [Concomitant]
  5. BRICANYL [Concomitant]
  6. DETURGYLONE [Concomitant]
  7. FENOFIBRATE [Concomitant]
     Dosage: UNK
  8. PREDNISONE TAB [Concomitant]
  9. GLUCOPHAGE [Concomitant]
  10. SYMBICORT [Concomitant]
     Indication: CORONARY ARTERY DISEASE
  11. CREON [Concomitant]
  12. LYRICA [Concomitant]

REACTIONS (3)
  - SKIN LESION [None]
  - ANGIOEDEMA [None]
  - PRURITUS [None]
